FAERS Safety Report 5372558-X (Version None)
Quarter: 2007Q2

REPORT INFORMATION
  Report Type: 
  Country: None (occurrence: None)
  Receive Date: 20070627
  Receipt Date: 20070621
  Transmission Date: 20071010
  Serious: Yes (Hospitalization)
  Sender: FDA-Public Use
  Company Number: DE-ABBOTT-07P-062-0372116-00

PATIENT
  Age: 43 Year
  Sex: Male
  Weight: 76 kg

DRUGS (5)
  1. HUMIRA [Suspect]
     Indication: ANKYLOSING SPONDYLITIS
     Route: 058
     Dates: end: 20070301
  2. HUMIRA [Suspect]
     Route: 058
     Dates: start: 20070401
  3. METHOTREXATE [Concomitant]
     Indication: ANKYLOSING SPONDYLITIS
  4. TRAMADOL HCL [Concomitant]
     Indication: ANKYLOSING SPONDYLITIS
     Dates: end: 20070601
  5. PIROXICAM [Concomitant]
     Indication: ANKYLOSING SPONDYLITIS
     Dates: end: 20070601

REACTIONS (1)
  - OSTEOARTHRITIS [None]
